FAERS Safety Report 7790572-1 (Version None)
Quarter: 2011Q3

REPORT INFORMATION
  Report Type: 
  Country: None (occurrence: None)
  Receive Date: 20110930
  Receipt Date: 20110922
  Transmission Date: 20111222
  Serious: Yes (Hospitalization)
  Sender: FDA-Public Use
  Company Number: US-SHIRE-ALL1-2011-03562

PATIENT
  Sex: Female
  Weight: 49.887 kg

DRUGS (14)
  1. EFFEXOR [Concomitant]
     Indication: DEPRESSION
     Dosage: 375 MG, 1X/DAY:QD
     Route: 048
  2. SEROQUEL [Concomitant]
     Indication: SLEEP TERROR
     Dosage: 300 MG, 1X/DAY:QD
     Route: 048
  3. KLONOPIN [Concomitant]
     Indication: PANIC ATTACK
     Dosage: 1 MG, AS REQ'D (UP TO FOUR TIMES DAILY)
     Route: 048
     Dates: start: 19950101
  4. PROPRANOLOL [Concomitant]
     Indication: POST-TRAUMATIC STRESS DISORDER
     Dosage: UNK, UNKNOWN
     Route: 048
  5. SYNTHROID [Concomitant]
     Indication: SUPPLEMENTATION THERAPY
     Dosage: 75 MCG, 1X/DAY:QD
     Route: 048
  6. TUMS                               /00193601/ [Concomitant]
     Indication: GASTROOESOPHAGEAL REFLUX DISEASE
     Dosage: UNK, AS REQ'D
     Route: 048
  7. SLEEP MEDICATION (UNSPECIFIED) [Concomitant]
     Indication: INSOMNIA
     Dosage: UNK, UNKNOWN
     Route: 048
  8. QUINAPRIL HCL [Concomitant]
     Indication: HYPERTENSION
     Dosage: 40 MG, 1X/DAY:QD
     Route: 048
  9. KLONOPIN [Concomitant]
     Indication: BIPOLAR DISORDER
  10. KLONOPIN [Concomitant]
     Indication: DEPRESSION
  11. ADDERALL XR 10 [Suspect]
     Indication: ATTENTION DEFICIT/HYPERACTIVITY DISORDER
     Dosage: 30 MG, 2X/DAY:BID
     Route: 048
     Dates: start: 19980101, end: 20070101
  12. KLONOPIN [Concomitant]
     Indication: ANXIETY
     Dosage: 1 MG, OTHER (5 TIMES A DAY)
     Route: 048
  13. KEPPRA [Concomitant]
     Indication: CONVULSION
     Dosage: UNK, 1X/DAY:QD
     Route: 048
     Dates: start: 19920101
  14. LUNESTA [Concomitant]
     Indication: INSOMNIA
     Dosage: 2 MG, AS REQ'D
     Route: 048

REACTIONS (25)
  - BIPOLAR DISORDER [None]
  - VICTIM OF SPOUSAL ABUSE [None]
  - GRAND MAL CONVULSION [None]
  - CHRONIC OBSTRUCTIVE PULMONARY DISEASE [None]
  - STOMATITIS [None]
  - HYPOMANIA [None]
  - BRAIN INJURY [None]
  - FIBROMYALGIA [None]
  - ADVERSE EVENT [None]
  - SKULL FRACTURE [None]
  - VITAMIN D DEFICIENCY [None]
  - BLOOD IRON DECREASED [None]
  - VISUAL ACUITY REDUCED [None]
  - FACIAL BONES FRACTURE [None]
  - PANIC ATTACK [None]
  - OVERDOSE [None]
  - SYSTEMIC LUPUS ERYTHEMATOSUS [None]
  - AGORAPHOBIA [None]
  - CONDITION AGGRAVATED [None]
  - HAEMOGLOBIN DECREASED [None]
  - DEPRESSION [None]
  - ANXIETY [None]
  - HEADACHE [None]
  - DRUG INEFFECTIVE [None]
  - TOOTH FRACTURE [None]
